FAERS Safety Report 4372055-4 (Version None)
Quarter: 2004Q2

REPORT INFORMATION
  Report Type: 
  Country: None (occurrence: None)
  Receive Date: 20040602
  Receipt Date: 20040518
  Transmission Date: 20050107
  Serious: Yes (Hospitalization)
  Sender: FDA-Public Use
  Company Number: 2004-BP-03657NB

PATIENT
  Age: 75 Year
  Sex: Male

DRUGS (9)
  1. MICARDIS [Suspect]
     Indication: HYPERTENSION
     Dosage: 40 MG (40 MG) PO
     Route: 048
     Dates: start: 20040405, end: 20040430
  2. ADALAT [Suspect]
     Indication: HYPERTENSION
     Dosage: 20 MG (20 MG) PO
     Route: 048
     Dates: start: 20040405, end: 20040430
  3. MOIOPAMIN 300(AMV) [Suspect]
     Dosage: 100 MG(NR) IV DRIP INFUSION PYELOGRAPHY
     Route: 041
     Dates: start: 20040426, end: 20040426
  4. EBRANTIL(URAPIDIL) (KA) [Concomitant]
  5. MUCODYNE (CARBOCISTEINE) (TA) [Concomitant]
  6. LOXONIN (LOXOPROFEN SODIUM) (TA) [Concomitant]
  7. TRANSAMIN(TRANEXAMIC ACID) (KA) [Concomitant]
  8. CEFZON(CEFDINIR) (KA) [Concomitant]
  9. ZYLORIC(CEFDINIR) (TA) [Concomitant]

REACTIONS (2)
  - HEPATIC FUNCTION ABNORMAL [None]
  - RENAL FAILURE ACUTE [None]
